FAERS Safety Report 5712740-2 (Version None)
Quarter: 2008Q2

REPORT INFORMATION
  Report Type: 
  Country: None (occurrence: None)
  Receive Date: 20080421
  Receipt Date: 20080421
  Transmission Date: 20081010
  Serious: Yes (Life-Threatening)
  Sender: FDA-Public Use
  Company Number: None

PATIENT
  Age: 63 Year
  Sex: Male
  Weight: 95.2554 kg

DRUGS (2)
  1. REMERON [Suspect]
     Indication: ANXIETY
     Dosage: 30 MGS ONE PER DAY PO
     Route: 048
  2. REMERON [Suspect]
     Indication: DEPRESSION
     Dosage: 30 MGS ONE PER DAY PO
     Route: 048

REACTIONS (4)
  - ABNORMAL DREAMS [None]
  - DEPRESSION [None]
  - HEADACHE [None]
  - PHARMACEUTICAL PRODUCT COMPLAINT [None]
